FAERS Safety Report 11596166 (Version 1)
Quarter: 2015Q4

REPORT INFORMATION
  Report Type: Report from Study
  Country: US (occurrence: US)
  Receive Date: 20151006
  Receipt Date: 20151006
  Transmission Date: 20160304
  Serious: Yes (Death)
  Sender: FDA-Public Use
  Company Number: US-MALLINCKRODT-T201504477

PATIENT
  Age: 57 Year
  Sex: Male
  Weight: 151 kg

DRUGS (10)
  1. REPOSITORY CORTICOTROPIN INJECTION [Suspect]
     Active Substance: CORTICOTROPIN
     Indication: FOCAL SEGMENTAL GLOMERULOSCLEROSIS
     Dosage: 80 UNITS TWICE WEEKLY
     Route: 058
     Dates: start: 201504
  2. OMEPRAZOLE. [Concomitant]
     Active Substance: OMEPRAZOLE
     Dosage: 20 MG, PRN
  3. REPOSITORY CORTICOTROPIN INJECTION [Suspect]
     Active Substance: CORTICOTROPIN
     Indication: NEPHRITIS
     Dosage: 40 UNITS TWICE WEEKLY FOR ONE MONTH
     Route: 058
     Dates: start: 201503, end: 201504
  4. AMLODIPINE BENAZEPRIL [Concomitant]
     Active Substance: AMLODIPINE BESYLATE\BENAZEPRIL HYDROCHLORIDE
     Dosage: 10/20 QD
  5. ALEVE [Concomitant]
     Active Substance: NAPROXEN SODIUM
  6. KLOR-CON [Concomitant]
     Active Substance: POTASSIUM CHLORIDE
     Dosage: 10 MEQ, QD IN AM
  7. METOPROLOL TARTRATE. [Concomitant]
     Active Substance: METOPROLOL TARTRATE
     Dosage: 100 MG BID
  8. IMDUR [Concomitant]
     Active Substance: ISOSORBIDE MONONITRATE
     Dosage: 30 MG  QD
  9. VITAMIN D [Concomitant]
     Active Substance: CHOLECALCIFEROL
     Dosage: 5,000 UNITS QD
  10. LASIX [Concomitant]
     Active Substance: FUROSEMIDE
     Dosage: 40 MG ; 4 TABS BID

REACTIONS (1)
  - Death [Fatal]

NARRATIVE: CASE EVENT DATE: 20150920
